FAERS Safety Report 19190410 (Version 2)
Quarter: 2021Q2

REPORT INFORMATION
  Report Type: Spontaneous
  Country: CH (occurrence: CH)
  Receive Date: 20210428
  Receipt Date: 20210506
  Transmission Date: 20210717
  Serious: Yes (Death)
  Sender: FDA-Public Use
  Company Number: CH-TAKEDA-2021TUS026694

PATIENT
  Sex: Male

DRUGS (3)
  1. FEIBA NF [Suspect]
     Active Substance: ANTI-INHIBITOR COAGULANT COMPLEX
     Dosage: 1000 INTERNATIONAL UNIT
     Route: 065
  2. FEIBA NF [Suspect]
     Active Substance: ANTI-INHIBITOR COAGULANT COMPLEX
     Indication: ACQUIRED HAEMOPHILIA
     Dosage: UNK
     Route: 065
  3. FEIBA NF [Suspect]
     Active Substance: ANTI-INHIBITOR COAGULANT COMPLEX
     Dosage: 1000 INTERNATIONAL UNIT
     Route: 065

REACTIONS (1)
  - Factor VIII deficiency [Fatal]
